FAERS Safety Report 6852924-3 (Version None)
Quarter: 2010Q3

REPORT INFORMATION
  Report Type: 
  Country: None (occurrence: None)
  Receive Date: 20100717
  Receipt Date: 20071126
  Transmission Date: 20110219
  Serious: Yes (Other)
  Sender: FDA-Public Use
  Company Number: US-PFIZER INC-2007101450

PATIENT
  Sex: Female
  Weight: 67.727 kg

DRUGS (2)
  1. CHANTIX [Suspect]
     Indication: SMOKING CESSATION THERAPY
     Dates: start: 20070929, end: 20071005
  2. ZOLOFT [Concomitant]
     Indication: DEPRESSION

REACTIONS (2)
  - CRYING [None]
  - MENTAL DISORDER [None]
